FAERS Safety Report 7845170-8 (Version None)
Quarter: 2011Q4

REPORT INFORMATION
  Report Type: 
  Country: None (occurrence: None)
  Receive Date: 20111025
  Receipt Date: 20111020
  Transmission Date: 20120403
  Serious: Yes (Other)
  Sender: FDA-Public Use
  Company Number: CHPA2011US14582

PATIENT
  Age: 74 Year
  Sex: Female

DRUGS (4)
  1. VOLTAREN [Suspect]
     Indication: INFLAMMATION
     Dosage: 4 G, QID
     Route: 061
     Dates: start: 20111013, end: 20111020
  2. METFORMIN HCL [Concomitant]
     Indication: TYPE 2 DIABETES MELLITUS
  3. GLIPIZIDE [Concomitant]
     Indication: TYPE 2 DIABETES MELLITUS
  4. XOPENEX [Suspect]
     Indication: BRONCHITIS
     Dosage: UNK, UNK

REACTIONS (3)
  - BLOOD GLUCOSE INCREASED [None]
  - CONCOMITANT DISEASE AGGRAVATED [None]
  - OFF LABEL USE [None]
